FAERS Safety Report 8922060 (Version 2)
Quarter: 2013Q2

REPORT INFORMATION
  Report Type: Report from Study
  Country: LB (occurrence: LB)
  Receive Date: 20121123
  Receipt Date: 20130528
  Transmission Date: 20140414
  Serious: No
  Sender: FDA-Public Use
  Company Number: PHHY2012LB107040

PATIENT
  Age: 76 Year
  Sex: Male

DRUGS (4)
  1. TASIGNA [Suspect]
     Indication: CHRONIC MYELOID LEUKAEMIA
     Dosage: 600 MG, DAILY
     Route: 048
     Dates: start: 20090401
  2. GALVUS [Concomitant]
     Dosage: 1 DF, QD
  3. AMARYL [Concomitant]
     Dosage: 1 DF, QD
     Route: 048
  4. LIPONORM [Concomitant]
     Dosage: 1 DF, QD

REACTIONS (1)
  - Drug ineffective [Not Recovered/Not Resolved]
